FAERS Safety Report 6028805-4 (Version None)
Quarter: 2009Q1

REPORT INFORMATION
  Report Type: 
  Country: None (occurrence: None)
  Receive Date: 20090102
  Receipt Date: 20081215
  Transmission Date: 20090719
  Serious: Yes (Death, Life-Threatening, Hospitalization)
  Sender: FDA-Public Use
  Company Number: DSA_32933_2008

PATIENT
  Sex: Female

DRUGS (4)
  1. TAVOR /00273201/ (TAVOR) (NOT SPECIFIED) [Suspect]
     Indication: DRUG USE FOR UNKNOWN INDICATION
     Dosage: (0.5-1 MG 1 TIME PER DAY (TOTAL AMOUNT 4.5 MG) SUBLINGUAL)
     Route: 060
     Dates: start: 20080522, end: 20080527
  2. CORDAREX /00133102/ (CORDAREX) (NOT SPECIFIED) [Suspect]
     Indication: DRUG USE FOR UNKNOWN INDICATION
     Dosage: (200 MG QD ORAL)
     Route: 048
     Dates: start: 20080519, end: 20080528
  3. ZOFRAN [Suspect]
     Indication: DRUG USE FOR UNKNOWN INDICATION
     Dosage: (8 MG QD SUBLINGUAL), (8 MG QD SUBLINGUAL)
     Route: 060
     Dates: start: 20080523, end: 20080523
  4. ZOFRAN [Suspect]
     Indication: DRUG USE FOR UNKNOWN INDICATION
     Dosage: (8 MG QD SUBLINGUAL), (8 MG QD SUBLINGUAL)
     Route: 060
     Dates: start: 20080526, end: 20080528

REACTIONS (7)
  - CHOLELITHIASIS [None]
  - HAEMOGLOBIN DECREASED [None]
  - HEPATIC STEATOSIS [None]
  - HEPATITIS ACUTE [None]
  - MULTI-ORGAN FAILURE [None]
  - PANCREATITIS ACUTE [None]
  - SHOCK [None]
